FAERS Safety Report 10310918 (Version 1)
Quarter: 2014Q3

REPORT INFORMATION
  Report Type: Spontaneous
  Country: US (occurrence: None)
  Receive Date: 20140716
  Receipt Date: 20140716
  Transmission Date: 20150326
  Serious: Yes (Hospitalization)
  Sender: FDA-Public Use
  Company Number: None

PATIENT
  Age: 86 Year
  Sex: Female
  Weight: 75 kg

DRUGS (15)
  1. EPINEPHRINE. [Concomitant]
     Active Substance: EPINEPHRINE
  2. GLUCOSAMINE/CHONDROITIN [Concomitant]
  3. FUROSEMIDE. [Concomitant]
     Active Substance: FUROSEMIDE
  4. OXYCODONE/ACETAMINOPHEN [Concomitant]
     Active Substance: ACETAMINOPHEN\OXYCODONE\OXYCODONE HYDROCHLORIDE
  5. IRON DEXTRAN [Suspect]
     Active Substance: IRON DEXTRAN
     Route: 042
     Dates: start: 20140115
  6. LEVOTHYROXINE [Concomitant]
     Active Substance: LEVOTHYROXINE
  7. DICLOFENAC [Concomitant]
     Active Substance: DICLOFENAC
  8. WARFARIN [Concomitant]
     Active Substance: WARFARIN
  9. OMEPRAZOLE. [Concomitant]
     Active Substance: OMEPRAZOLE
  10. KCL [Concomitant]
     Active Substance: POTASSIUM CHLORIDE
  11. CALCIUM+VITMAIN D [Concomitant]
  12. SIMVASTATIN. [Concomitant]
     Active Substance: SIMVASTATIN
  13. DOCUSATE CALCIUM. [Concomitant]
     Active Substance: DOCUSATE CALCIUM
  14. SUCRALFATE. [Concomitant]
     Active Substance: SUCRALFATE
  15. DIGOXIN. [Concomitant]
     Active Substance: DIGOXIN

REACTIONS (4)
  - Rash erythematous [None]
  - Throat tightness [None]
  - Chest discomfort [None]
  - Cardiac stress test abnormal [None]

NARRATIVE: CASE EVENT DATE: 20140116
